FAERS Safety Report 18847741 (Version 2)
Quarter: 2021Q1

REPORT INFORMATION
  Report Type: Report from Study
  Country: ES (occurrence: ES)
  Receive Date: 20210204
  Receipt Date: 20210222
  Transmission Date: 20210419
  Serious: No
  Sender: FDA-Public Use
  Company Number: ES-JNJFOC-20210144448

PATIENT

DRUGS (3)
  1. DUROGESIC MATRIX [Suspect]
     Active Substance: FENTANYL
  2. DUROGESIC MATRIX [Suspect]
     Active Substance: FENTANYL
  3. DUROGESIC MATRIX [Suspect]
     Active Substance: FENTANYL
     Indication: PAIN
     Dosage: DOSE: UNKNOWN
     Route: 062

REACTIONS (8)
  - Treatment noncompliance [Unknown]
  - Constipation [Unknown]
  - Nausea [Unknown]
  - Product use complaint [Unknown]
  - Product adhesion issue [Unknown]
  - Sedation [Unknown]
  - Vomiting [Unknown]
  - Pruritus [Unknown]
